FAERS Safety Report 15410665 (Version 1)
Quarter: 2018Q4

REPORT INFORMATION
  Report Type: Report from Study
  Country: IT (occurrence: IT)
  Receive Date: 20180921
  Receipt Date: 20180921
  Transmission Date: 20190204
  Serious: Yes (Hospitalization)
  Sender: FDA-Public Use
  Company Number: IT-TEVA-2018-IT-957269

PATIENT
  Age: 39 Year
  Sex: Female

DRUGS (5)
  1. AULIN 100 MG GRANULATO PER SOSPENSIONE ORALE [Suspect]
     Active Substance: NIMESULIDE
     Indication: DRUG ABUSE
     Route: 048
     Dates: start: 20180805, end: 20180805
  2. NUROFEN [Suspect]
     Active Substance: IBUPROFEN
     Indication: DRUG ABUSE
     Route: 048
     Dates: start: 20180805, end: 20180805
  3. TACHIPIRINA [Suspect]
     Active Substance: ACETAMINOPHEN
     Indication: DRUG ABUSE
     Dosage: OROSOLUBLE 500 MG GRANULATED STRAWBERRY TASTE-VANILLA
     Route: 048
     Dates: start: 20180805, end: 20180805
  4. NORMIX 200 MG COMPRESSE RIVESTITE CON FILM [Suspect]
     Active Substance: RIFAXIMIN
     Indication: DRUG ABUSE
     Route: 048
     Dates: start: 20180805, end: 20180805
  5. ALPRAZOLAM. [Suspect]
     Active Substance: ALPRAZOLAM
     Indication: DRUG ABUSE
     Route: 048
     Dates: start: 20180805, end: 20180805

REACTIONS (2)
  - Drug abuse [Recovering/Resolving]
  - Dizziness [Recovering/Resolving]

NARRATIVE: CASE EVENT DATE: 20180805
